FAERS Safety Report 8509817-5 (Version None)
Quarter: 2012Q3

REPORT INFORMATION
  Report Type: 
  Country: None (occurrence: None)
  Receive Date: 20120713
  Receipt Date: 20120710
  Transmission Date: 20120928
  Serious: Yes (Other)
  Sender: FDA-Public Use
  Company Number: GR-JNJFOC-20120703637

PATIENT
  Age: 31 Year
  Sex: Female

DRUGS (2)
  1. METHOTREXATE [Concomitant]
     Route: 065
  2. SIMPONI [Suspect]
     Indication: RHEUMATOID ARTHRITIS
     Route: 058
     Dates: start: 20110401, end: 20120501

REACTIONS (1)
  - THYROID CANCER [None]
